FAERS Safety Report 9158020 (Version 4)
Quarter: 2015Q1

REPORT INFORMATION
  Report Type: Report from Study
  Country: BR (occurrence: BR)
  Receive Date: 20130312
  Receipt Date: 20150309
  Transmission Date: 20150721
  Serious: Yes (Other)
  Sender: FDA-Public Use
  Company Number: BR-ROCHE-1199502

PATIENT
  Sex: Female
  Weight: 110 kg

DRUGS (23)
  1. MABTHERA [Suspect]
     Active Substance: RITUXIMAB
     Route: 042
     Dates: start: 20120525, end: 201205
  2. INSULIN REGULAR [Concomitant]
     Active Substance: INSULIN NOS
     Dosage: DAILY
     Route: 065
  3. MABTHERA [Suspect]
     Active Substance: RITUXIMAB
     Indication: RHEUMATOID ARTHRITIS
     Route: 042
     Dates: start: 2010
  4. MABTHERA [Suspect]
     Active Substance: RITUXIMAB
     Route: 042
     Dates: start: 20120611
  5. OMEPRAZOLE. [Concomitant]
     Active Substance: OMEPRAZOLE
  6. GABAPENTIN. [Concomitant]
     Active Substance: GABAPENTIN
     Dosage: DAILY
     Route: 065
  7. METFORMIN [Concomitant]
     Active Substance: METFORMIN HYDROCHLORIDE
     Dosage: DAILY
     Route: 065
  8. LISPRO INSULIN [Concomitant]
     Active Substance: INSULIN LISPRO
  9. METHOTREXATE [Concomitant]
     Active Substance: METHOTREXATE
     Dosage: DAILY
     Route: 065
  10. NPH INSULIN [Concomitant]
     Active Substance: INSULIN BEEF
     Dosage: DAILY
     Route: 065
  11. MABTHERA [Suspect]
     Active Substance: RITUXIMAB
     Route: 042
     Dates: start: 201205
  12. MABTHERA [Suspect]
     Active Substance: RITUXIMAB
     Route: 042
     Dates: start: 201403
  13. ACETYLSALICYLIC ACID [Concomitant]
     Active Substance: ASPIRIN
  14. ASA [Concomitant]
     Active Substance: ASPIRIN
     Dosage: DAILY
     Route: 065
  15. CHOLECALCIFEROL [Concomitant]
     Active Substance: CHOLECALCIFEROL
     Dosage: DAILY
     Route: 065
  16. PREDNISONE. [Concomitant]
     Active Substance: PREDNISONE
     Dosage: DAILY
     Route: 065
  17. OMEPRAZOLE. [Concomitant]
     Active Substance: OMEPRAZOLE
  18. ATORVASTATIN [Concomitant]
     Active Substance: ATORVASTATIN
     Dosage: DAILY
     Route: 065
  19. ENALAPRIL [Concomitant]
     Active Substance: ENALAPRIL
     Dosage: DAILY
     Route: 065
  20. PURAN [Concomitant]
     Active Substance: LEVOTHYROXINE SODIUM
  21. LEVEMIR [Concomitant]
     Active Substance: INSULIN DETEMIR
  22. SERTRALINE [Concomitant]
     Active Substance: SERTRALINE HYDROCHLORIDE
     Dosage: DAILY
     Route: 065
  23. FOLIC ACID. [Concomitant]
     Active Substance: FOLIC ACID
     Dosage: DAILY
     Route: 065

REACTIONS (4)
  - Diabetes mellitus [Recovered/Resolved]
  - Musculoskeletal stiffness [Not Recovered/Not Resolved]
  - Pain in extremity [Unknown]
  - Depression [Not Recovered/Not Resolved]

NARRATIVE: CASE EVENT DATE: 2014
